FAERS Safety Report 5565879-9 (Version None)
Quarter: 2007Q4

REPORT INFORMATION
  Report Type: 
  Country: None (occurrence: None)
  Receive Date: 20071213
  Receipt Date: 20071129
  Transmission Date: 20080405
  Serious: Yes (Hospitalization)
  Sender: FDA-Public Use
  Company Number: 060001M07DNK

PATIENT
  Age: 31 Year
  Sex: Female

DRUGS (4)
  1. SEROPHENE [Suspect]
     Indication: INFERTILITY
     Dosage: 5 DOSAGE FORMS; 100 MG, 1 IN 1 DAYS
     Dates: start: 20070917, end: 20070921
  2. SEROPHENE [Suspect]
     Indication: INFERTILITY
     Dosage: 5 DOSAGE FORMS; 100 MG, 1 IN 1 DAYS
     Dates: start: 20071016, end: 20071021
  3. PHENOXYMETHYLPENICILLIN [Suspect]
     Dates: start: 20071001, end: 20071001
  4. PREGNYL [Suspect]

REACTIONS (2)
  - COR PULMONALE ACUTE [None]
  - PULMONARY EMBOLISM [None]
